FAERS Safety Report 12865282 (Version 1)
Quarter: 2016Q4

REPORT INFORMATION
  Report Type: Spontaneous
  Country: AU (occurrence: AU)
  Receive Date: 20161020
  Receipt Date: 20161020
  Transmission Date: 20170207
  Serious: Yes (Other)
  Sender: FDA-Public Use
  Company Number: PHHY2016AU143977

PATIENT
  Age: 55 Year
  Sex: Female

DRUGS (1)
  1. PAZOPANIB [Suspect]
     Active Substance: PAZOPANIB
     Indication: PRODUCT USED FOR UNKNOWN INDICATION
     Route: 065

REACTIONS (9)
  - Thrombocytopenia [Unknown]
  - Diarrhoea [Unknown]
  - Dry skin [Unknown]
  - Hypothyroidism [Unknown]
  - Lethargy [Unknown]
  - Malaise [Unknown]
  - Rash [Unknown]
  - Asthenia [Unknown]
  - Neutropenia [Unknown]
